FAERS Safety Report 10082526 (Version 1)
Quarter: 2014Q2

REPORT INFORMATION
  Report Type: Spontaneous
  Country: US (occurrence: US)
  Receive Date: 20140416
  Receipt Date: 20140416
  Transmission Date: 20141212
  Serious: No
  Sender: FDA-Public Use
  Company Number: US-BIOGENIDEC-2014BI034688

PATIENT
  Age: 71 Year
  Sex: Female

DRUGS (10)
  1. AVONEX [Suspect]
     Indication: MULTIPLE SCLEROSIS
     Route: 030
     Dates: start: 20110405
  2. AMLODIPINE BESYLATE [Concomitant]
  3. BENICAR [Concomitant]
  4. BYSTOLIC [Concomitant]
  5. CLONIDINE HCL [Concomitant]
  6. CLONIDINE HCL ER [Concomitant]
  7. GABAPENTIN [Concomitant]
  8. METHOTREXATE SODIUM (PF) [Concomitant]
  9. MULTI-VITAMIN DAILY [Concomitant]
  10. PREDNISONE (PAK) [Concomitant]

REACTIONS (2)
  - Blood pressure increased [Unknown]
  - Blood creatinine increased [Unknown]
